FAERS Safety Report 6329415-1 (Version None)
Quarter: 2009Q3

REPORT INFORMATION
  Report Type: 
  Country: None (occurrence: None)
  Receive Date: 20090826
  Receipt Date: 20090819
  Transmission Date: 20100115
  Serious: Yes (Hospitalization)
  Sender: FDA-Public Use
  Company Number: A0803869A

PATIENT
  Sex: Male
  Weight: 64 kg

DRUGS (3)
  1. SERETIDE [Suspect]
     Indication: CHRONIC OBSTRUCTIVE PULMONARY DISEASE
     Dosage: 1PUFF PER DAY
     Route: 055
     Dates: start: 20040101
  2. SPIRIVA [Concomitant]
     Dosage: 1PUFF PER DAY
     Route: 055
     Dates: start: 20040101
  3. BAMIFIX [Concomitant]
     Dosage: 1TAB PER DAY
     Route: 048
     Dates: start: 20040101

REACTIONS (2)
  - DYSPNOEA [None]
  - HYPERTENSION [None]
